FAERS Safety Report 11976231 (Version 1)
Quarter: 2016Q1

REPORT INFORMATION
  Report Type: Spontaneous
  Country: JP (occurrence: JP)
  Receive Date: 20160129
  Receipt Date: 20160129
  Transmission Date: 20160526
  Serious: Yes (Other)
  Sender: FDA-Public Use
  Company Number: JP-CIPLA LTD.-2016JP00419

PATIENT

DRUGS (1)
  1. ZOLPIDEM TARTARATE [Suspect]
     Active Substance: ZOLPIDEM TARTRATE
     Indication: ADVERSE EVENT
     Dosage: 1.25-10 MG
     Route: 065

REACTIONS (1)
  - Altered state of consciousness [Unknown]
